FAERS Safety Report 5271474-1 (Version None)
Quarter: 2007Q1

REPORT INFORMATION
  Report Type: 
  Country: None (occurrence: None)
  Receive Date: 20070321
  Receipt Date: 20070315
  Transmission Date: 20070707
  Serious: Yes (Congenital Anomaly)
  Sender: FDA-Public Use
  Company Number: BE-SHR-BE-SHR-04-022106

PATIENT

DRUGS (3)
  1. BETASERON [Suspect]
     Dosage: UNK, UNK
     Route: 064
  2. DAFALGAN                                /FRA/ [Concomitant]
  3. EFFERALGAN C [Concomitant]

REACTIONS (2)
  - DRUG EXPOSURE DURING PREGNANCY [None]
  - HELLP SYNDROME [None]
